FAERS Safety Report 4592733-1 (Version None)
Quarter: 2005Q1

REPORT INFORMATION
  Report Type: 
  Country: None (occurrence: None)
  Receive Date: 20050228
  Receipt Date: 20050217
  Transmission Date: 20050727
  Serious: Yes (Hospitalization)
  Sender: FDA-Public Use
  Company Number: JP-BRISTOL-MYERS SQUIBB COMPANY-12871851

PATIENT
  Age: 43 Year
  Sex: Female

DRUGS (8)
  1. ENDOXAN [Suspect]
     Indication: HODGKIN'S DISEASE
  2. VINCRISTINE SULFATE [Suspect]
     Indication: HODGKIN'S DISEASE
  3. DOXORUBICIN HCL [Suspect]
     Indication: HODGKIN'S DISEASE
  4. BLEOMYCIN [Suspect]
     Indication: HODGKIN'S DISEASE
  5. PROCARBAZINE HCL [Suspect]
     Indication: HODGKIN'S DISEASE
  6. VINBLASTINE SULFATE [Suspect]
     Indication: HODGKIN'S DISEASE
  7. PREDNISOLONE ACETATE [Suspect]
     Indication: HODGKIN'S DISEASE
  8. RADIATION THERAPY [Suspect]
     Indication: HODGKIN'S DISEASE
     Dosage: 46 GY/25 TIMES

REACTIONS (2)
  - LYMPHOMA [None]
  - TREATMENT RELATED SECONDARY MALIGNANCY [None]
